FAERS Safety Report 16721717 (Version 1)
Quarter: 2019Q3

REPORT INFORMATION
  Report Type: Spontaneous
  Country: DE (occurrence: DE)
  Receive Date: 20190820
  Receipt Date: 20190820
  Transmission Date: 20191005
  Serious: Yes (Hospitalization)
  Sender: FDA-Public Use
  Company Number: DE-TEVA-2019-DE-1093161

PATIENT
  Age: 84 Year
  Sex: Female
  Weight: 64 kg

DRUGS (11)
  1. DABIGATRAN [Concomitant]
     Active Substance: DABIGATRAN
     Dosage: 110 MG, 1-0-1-0, TABLETS
     Route: 048
  2. IPRATROPIUMBROMID [Concomitant]
     Active Substance: IPRATROPIUM BROMIDE
     Dosage: 20 MICROGRAM , 4-6X/TAG, DOSIERAEROSOL
     Route: 055
  3. CANDESARTAN. [Concomitant]
     Active Substance: CANDESARTAN
     Dosage: 32 MG, 1-0-0-0, TABLETS
     Route: 048
  4. SALBUTAMOL [Concomitant]
     Active Substance: ALBUTEROL
     Dosage: LEARN TO PRONOUNCE ????0.1 MG, 4-6X / DAY, METERED DOSE INHALER
     Route: 055
  5. MOVICOL [Concomitant]
     Active Substance: POLYETHYLENE GLYCOL 3350\POTASSIUM CHLORIDE\SODIUM BICARBONATE\SODIUM CHLORIDE
     Dosage: 1-1-0-0, BAG
     Route: 048
  6. ATORVASTATIN [Concomitant]
     Active Substance: ATORVASTATIN
     Dosage: 20 MG, 0-0-1-0, TABLETS
     Route: 048
  7. NATRIUMSELENIT [Concomitant]
     Dosage: 100 MG, 1-0-0-0, SOLUTION
     Route: 048
  8. LEVOTHYROXIN-NATRIUM [Concomitant]
     Active Substance: LEVOTHYROXINE SODIUM
     Dosage: 125 MICROGRAM , 1-0-0-0, TABLETS
     Route: 048
  9. AMIODARON [Suspect]
     Active Substance: AMIODARONE
     Dosage: 200 MG, 1-0-0-0, TABLETS
     Route: 048
  10. FENTANYL. [Concomitant]
     Active Substance: FENTANYL
     Dosage: 3 TAGE, PFLASTER TRANSDERMAL?????? LEARN TO PRONOUNCE ????12 MICROGRAM / H, EVERY 3 DAYS, PATCH TRAN
     Route: 062
  11. RANITIDIN [Concomitant]
     Active Substance: RANITIDINE HYDROCHLORIDE
     Dosage: 150 MG, 1-0-0-0, TABLETS
     Route: 048

REACTIONS (2)
  - Oedema peripheral [Unknown]
  - Dyspnoea [Unknown]
